FAERS Safety Report 9789398 (Version 2)
Quarter: 2014Q1

REPORT INFORMATION
  Report Type: Report from Study
  Country: CA (occurrence: CA)
  Receive Date: 20131231
  Receipt Date: 20140127
  Transmission Date: 20141002
  Serious: Yes (Other)
  Sender: FDA-Public Use
  Company Number: CA-ABBVIE-13P-028-1182969-00

PATIENT
  Age: 32 Year
  Sex: Female
  Weight: 49.94 kg

DRUGS (2)
  1. HUMIRA [Suspect]
     Indication: RHEUMATOID ARTHRITIS
     Route: 058
     Dates: start: 20130626, end: 20131127
  2. HUMIRA [Suspect]
     Indication: CROHN^S DISEASE

REACTIONS (1)
  - Lupus-like syndrome [Recovered/Resolved]
